FAERS Safety Report 19007411 (Version 1)
Quarter: 2021Q1

REPORT INFORMATION
  Report Type: Spontaneous
  Country: US (occurrence: US)
  Receive Date: 20210311
  Receipt Date: 20210311
  Transmission Date: 20210420
  Serious: Yes (Other)
  Sender: FDA-Public Use
  Company Number: None

PATIENT

DRUGS (1)
  1. SALINE FLUSH [Suspect]
     Active Substance: SODIUM CHLORIDE

REACTIONS (2)
  - Product use issue [None]
  - Syringe issue [None]

NARRATIVE: CASE EVENT DATE: 20210222
